FAERS Safety Report 11125222 (Version 2)
Quarter: 2015Q2

REPORT INFORMATION
  Report Type: Spontaneous
  Country: US (occurrence: US)
  Receive Date: 20150520
  Receipt Date: 20150602
  Transmission Date: 20150821
  Serious: Yes (Other)
  Sender: FDA-Public Use
  Company Number: US-BAYER-2015-249373

PATIENT
  Sex: Male

DRUGS (1)
  1. CIPRO [Suspect]
     Active Substance: CIPROFLOXACIN HYDROCHLORIDE
     Indication: COUGH
     Dosage: 750 MG, BID
     Dates: end: 201504

REACTIONS (7)
  - Compression fracture [None]
  - Peroneal nerve palsy [None]
  - Device difficult to use [None]
  - Bursitis [None]
  - Cough [None]
  - Fluid retention [None]
  - Joint swelling [None]
